FAERS Safety Report 11217460 (Version 1)
Quarter: 2015Q2

REPORT INFORMATION
  Report Type: Spontaneous
  Country: ID (occurrence: ID)
  Receive Date: 20150625
  Receipt Date: 20150625
  Transmission Date: 20150821
  Serious: Yes (Other)
  Sender: FDA-Public Use
  Company Number: ID-ROCHE-1596751

PATIENT

DRUGS (3)
  1. CARBOPLATIN. [Concomitant]
     Active Substance: CARBOPLATIN
     Indication: BREAST CANCER METASTATIC
  2. HERCEPTIN [Suspect]
     Active Substance: TRASTUZUMAB
     Indication: BREAST CANCER METASTATIC
     Dosage: 12 CYCLE, 3 WEEKLY
     Route: 041
  3. XELODA [Concomitant]
     Active Substance: CAPECITABINE
     Indication: BREAST CANCER METASTATIC
     Route: 065

REACTIONS (1)
  - Bone cancer metastatic [Unknown]
